FAERS Safety Report 16048016 (Version 2)
Quarter: 2019Q1

REPORT INFORMATION
  Report Type: Report from Study
  Country: US (occurrence: US)
  Receive Date: 20190307
  Receipt Date: 20190311
  Transmission Date: 20190418
  Serious: Yes (Other)
  Sender: FDA-Public Use
  Company Number: US-GILEAD-2019-0394768

PATIENT
  Age: 57 Year
  Sex: Male

DRUGS (1)
  1. SOFOSBUVIR W/VELPATASVIR [Suspect]
     Active Substance: SOFOSBUVIR\VELPATASVIR
     Indication: HEPATITIS C
     Dosage: 1 DF, QD
     Route: 048
     Dates: start: 20190107

REACTIONS (7)
  - Lip exfoliation [Not Recovered/Not Resolved]
  - Stevens-Johnson syndrome [Unknown]
  - Oral mucosal blistering [Not Recovered/Not Resolved]
  - Rash vesicular [Not Recovered/Not Resolved]
  - Tongue eruption [Not Recovered/Not Resolved]
  - Rash vesicular [Not Recovered/Not Resolved]
  - Cheilitis [Not Recovered/Not Resolved]

NARRATIVE: CASE EVENT DATE: 20190218
